FAERS Safety Report 6896663-1 (Version None)
Quarter: 2010Q3

REPORT INFORMATION
  Report Type: 
  Country: None (occurrence: None)
  Receive Date: 20100729
  Receipt Date: 20100722
  Transmission Date: 20110219
  Serious: Yes (Hospitalization)
  Sender: FDA-Public Use
  Company Number: 2010S1000201

PATIENT
  Age: 60 Year
  Sex: Male
  Weight: 75 kg

DRUGS (10)
  1. LIVALO [Suspect]
     Indication: DYSLIPIDAEMIA
     Dosage: 2 MG; 1X; PO
     Route: 048
     Dates: start: 20100220, end: 20100315
  2. MEDET (CON.) [Concomitant]
  3. GLUTAMEAL (CON.) [Concomitant]
  4. METHYCOBAL /00324901/ (CON.) [Concomitant]
  5. PREMINENT (CON.) [Concomitant]
  6. ATELEC (CON.) [Concomitant]
  7. BAYASPIRIN (CON.) [Concomitant]
  8. PARIET (CON.) [Concomitant]
  9. KAKKON-TO (CON.) [Concomitant]
  10. LANTUS (CON.) [Concomitant]

REACTIONS (10)
  - ASPARTATE AMINOTRANSFERASE INCREASED [None]
  - BLOOD ALBUMIN DECREASED [None]
  - BLOOD CREATINE PHOSPHOKINASE MB [None]
  - BLOOD LACTATE DEHYDROGENASE INCREASED [None]
  - BRAIN NATRIURETIC PEPTIDE INCREASED [None]
  - CARDIAC FAILURE [None]
  - DISCOMFORT [None]
  - PULMONARY OEDEMA [None]
  - RESPIRATORY DISORDER [None]
  - RESPIRATORY DISTRESS [None]
